FAERS Safety Report 7104841-1 (Version None)
Quarter: 2010Q4

REPORT INFORMATION
  Report Type: 
  Country: None (occurrence: None)
  Receive Date: 20101109
  Receipt Date: 20101028
  Transmission Date: 20110411
  Serious: Yes (Hospitalization)
  Sender: FDA-Public Use
  Company Number: 020282

PATIENT
  Sex: Female
  Weight: 113.8529 kg

DRUGS (2)
  1. KEPPRA [Suspect]
  2. AVONEX [Suspect]
     Indication: MULTIPLE SCLEROSIS
     Dosage: (30 ?G 1X/WEEK INTRAMUSCULAR)
     Route: 030
     Dates: start: 20100208, end: 20100312

REACTIONS (6)
  - CONDITION AGGRAVATED [None]
  - CONVULSION [None]
  - INFLUENZA LIKE ILLNESS [None]
  - MULTIPLE SCLEROSIS [None]
  - SEPSIS [None]
  - UNRESPONSIVE TO STIMULI [None]
